FAERS Safety Report 6269921-1 (Version None)
Quarter: 2009Q3

REPORT INFORMATION
  Report Type: 
  Country: None (occurrence: None)
  Receive Date: 20090716
  Receipt Date: 20090710
  Transmission Date: 20100115
  Serious: Yes (Death, Hospitalization)
  Sender: FDA-Public Use
  Company Number: PHHO2007GB05213

PATIENT
  Sex: Male
  Weight: 99.15 kg

DRUGS (6)
  1. AMN107 AMN+CAP [Suspect]
     Indication: CHRONIC MYELOID LEUKAEMIA
     Dosage: 200 MG, QD
     Route: 048
     Dates: start: 20051114, end: 20070224
  2. AMN107 AMN+CAP [Suspect]
     Dosage: 200MG DAILY
     Route: 048
     Dates: start: 20070225, end: 20070305
  3. AMN107 AMN+CAP [Suspect]
     Dosage: UNK
     Dates: start: 20070306, end: 20070320
  4. AMN107 AMN+CAP [Suspect]
     Dosage: 400MG DAILY
     Route: 048
     Dates: start: 20070321, end: 20070324
  5. HYDROXYUREA [Concomitant]
  6. ALLOPURINOL [Concomitant]

REACTIONS (5)
  - CARDIAC ARREST [None]
  - CEREBRAL HAEMORRHAGE [None]
  - CHRONIC MYELOID LEUKAEMIA [None]
  - LEUKOCYTOSIS [None]
  - THROMBOCYTOPENIA [None]
